FAERS Safety Report 26042074 (Version 1)
Quarter: 2025Q4

REPORT INFORMATION
  Report Type: Spontaneous
  Country: US (occurrence: None)
  Receive Date: 20251113
  Receipt Date: 20251113
  Transmission Date: 20260117
  Serious: No
  Sender: INCYTE
  Company Number: US-INCYTE CORPORATION-2025IN012255

PATIENT
  Age: 41 Year

DRUGS (3)
  1. JAKAFI [Suspect]
     Active Substance: RUXOLITINIB
     Indication: Product used for unknown indication
     Dosage: 10 MILLIGRAM, IN THE MORNING MONDAY, WEDNESDAY, AND FRIDAY
  2. JAKAFI [Suspect]
     Active Substance: RUXOLITINIB
     Dosage: 5 MILLIGRAM, IN THE EVENING MONDAY, WEDNESDAY, AND FRIDAY
  3. JAKAFI [Suspect]
     Active Substance: RUXOLITINIB
     Dosage: 10 MILLIGRAM, BID, ON TUESDAY, THURSDAY, SATURDAY, SUNDAY

REACTIONS (1)
  - Off label use [Unknown]
